FAERS Safety Report 11141140 (Version 1)
Quarter: 2015Q2

REPORT INFORMATION
  Report Type: Spontaneous
  Country: GB (occurrence: GB)
  Receive Date: 20150527
  Receipt Date: 20150527
  Transmission Date: 20150821
  Serious: Yes (Other)
  Sender: FDA-Public Use
  Company Number: GB-GLAXOSMITHKLINE-GB2015069465

PATIENT
  Age: 67 Year
  Sex: Female
  Weight: 76.2 kg

DRUGS (14)
  1. ALVERINE CITRATE [Concomitant]
     Active Substance: ALVERINE CITRATE
  2. DESLORATADIN [Concomitant]
  3. DOXAZOSIN [Concomitant]
     Active Substance: DOXAZOSIN\DOXAZOSIN MESYLATE
  4. COLPERMIN [Concomitant]
  5. ASPIRIN. [Concomitant]
     Active Substance: ASPIRIN
  6. MONTELUKAST [Concomitant]
     Active Substance: MONTELUKAST SODIUM
  7. HYDROXOCOBALAMIN [Concomitant]
     Active Substance: HYDROXOCOBALAMIN
  8. LOSARTAN [Concomitant]
     Active Substance: LOSARTAN
  9. ATORVASTATIN [Concomitant]
     Active Substance: ATORVASTATIN
  10. BENDROFLUMETHIAZID [Concomitant]
  11. METFORMIN [Concomitant]
     Active Substance: METFORMIN HYDROCHLORIDE
  12. RELVAR ELLIPTA [Suspect]
     Active Substance: FLUTICASONE FUROATE\VILANTEROL TRIFENATATE
     Indication: ASTHMA
     Dosage: 1 DF, QD
     Route: 055
     Dates: start: 20150206, end: 201503
  13. FERROUS FUMARATE [Concomitant]
     Active Substance: FERROUS FUMARATE
  14. OMEPRAZOLE. [Concomitant]
     Active Substance: OMEPRAZOLE

REACTIONS (6)
  - Wheezing [Recovered/Resolved]
  - Asthma [Unknown]
  - Abdominal pain upper [Recovered/Resolved]
  - Cough [Recovered/Resolved]
  - Malaise [Unknown]
  - Headache [Recovered/Resolved]

NARRATIVE: CASE EVENT DATE: 201502
